FAERS Safety Report 19377325 (Version 1)
Quarter: 2021Q2

REPORT INFORMATION
  Report Type: Report from Study
  Country: KR (occurrence: KR)
  Receive Date: 20210605
  Receipt Date: 20210605
  Transmission Date: 20210717
  Serious: Yes (Other)
  Sender: FDA-Public Use
  Company Number: KR-AMGEN-KORCT2021083804

PATIENT
  Age: 64 Year
  Sex: Male

DRUGS (35)
  1. AFLIBERCEPT [Concomitant]
     Active Substance: AFLIBERCEPT
     Indication: PRODUCT USED FOR UNKNOWN INDICATION
     Dosage: 252 MILLIGRAM
     Dates: start: 20181116
  2. APREPITANT. [Concomitant]
     Active Substance: APREPITANT
     Dosage: 150 MILLIGRAM
     Dates: start: 20181012, end: 20181012
  3. CALCIUM FOLINATE [Concomitant]
     Active Substance: LEUCOVORIN CALCIUM
     Dosage: 200 MILLIGRAM
     Dates: start: 20181012, end: 20181012
  4. AFLIBERCEPT [Concomitant]
     Active Substance: AFLIBERCEPT
     Dosage: 261 MILLIGRAM
     Dates: start: 20181012
  5. CALCIUM FOLINATE [Concomitant]
     Active Substance: LEUCOVORIN CALCIUM
     Dosage: 200 MILLIGRAM
     Dates: start: 20081026, end: 20181026
  6. FLUOROURACIL. [Concomitant]
     Active Substance: FLUOROURACIL
     Indication: PRODUCT USED FOR UNKNOWN INDICATION
     Dosage: 2800 MILLIGRAM
     Dates: start: 20180919
  7. FLUOROURACIL. [Concomitant]
     Active Substance: FLUOROURACIL
     Dosage: 1920 MILLIGRAM
     Dates: start: 20181012
  8. AFLIBERCEPT [Concomitant]
     Active Substance: AFLIBERCEPT
     Dosage: 260 MILLIGRAM
     Dates: start: 20180919
  9. DEXAMETHASONE. [Concomitant]
     Active Substance: DEXAMETHASONE
     Dosage: 12 MILLIGRAM
     Dates: start: 20181116, end: 20181116
  10. FLUOROURACIL. [Concomitant]
     Active Substance: FLUOROURACIL
     Dosage: 1920 MILLIGRAM
     Dates: start: 20181026
  11. APREPITANT. [Concomitant]
     Active Substance: APREPITANT
     Indication: PRODUCT USED FOR UNKNOWN INDICATION
     Dosage: 150 MILLIGRAM
     Dates: start: 20180919, end: 20180919
  12. CALCIUM FOLINATE [Concomitant]
     Active Substance: LEUCOVORIN CALCIUM
     Indication: PRODUCT USED FOR UNKNOWN INDICATION
     Dosage: 200 MILLIGRAM
     Dates: start: 20180919
  13. CALCIUM FOLINATE [Concomitant]
     Active Substance: LEUCOVORIN CALCIUM
     Dosage: 200 MILLIGRAM
     Dates: start: 20181116, end: 20181116
  14. DULOXETINE. [Concomitant]
     Active Substance: DULOXETINE
     Indication: PRODUCT USED FOR UNKNOWN INDICATION
     Dosage: 30 MILLIGRAM
     Dates: start: 20181012
  15. IRINOTECAN [Concomitant]
     Active Substance: IRINOTECAN
     Indication: PRODUCT USED FOR UNKNOWN INDICATION
     Dosage: 180 MILLIGRAM
     Dates: start: 20180919
  16. IRINOTECAN [Concomitant]
     Active Substance: IRINOTECAN
     Dosage: 144 MILLIGRAM
     Dates: start: 20181012
  17. FILGRASTIM [Suspect]
     Active Substance: FILGRASTIM
     Indication: PRODUCT USED FOR UNKNOWN INDICATION
     Dosage: 300 UNK
     Route: 065
     Dates: start: 20181005, end: 20181005
  18. APREPITANT. [Concomitant]
     Active Substance: APREPITANT
     Dosage: 150 MILLIGRAM
     Dates: start: 20181026, end: 20181026
  19. ATROPINE. [Concomitant]
     Active Substance: ATROPINE
     Indication: PRODUCT USED FOR UNKNOWN INDICATION
     Dosage: 0.5 MILLIGRAM
     Dates: start: 20180919, end: 20180919
  20. ATROPINE. [Concomitant]
     Active Substance: ATROPINE
     Dosage: 0.5 MILLIGRAM
     Dates: start: 20181012, end: 20181012
  21. DEXAMETHASONE. [Concomitant]
     Active Substance: DEXAMETHASONE
     Indication: PRODUCT USED FOR UNKNOWN INDICATION
     Dosage: 12 MILLIGRAM
     Dates: start: 20180919, end: 20180919
  22. DEXAMETHASONE. [Concomitant]
     Active Substance: DEXAMETHASONE
     Dosage: 12 MILLIGRAM
     Dates: start: 20181026, end: 20181026
  23. METOCLOPRAMIDE. [Concomitant]
     Active Substance: METOCLOPRAMIDE
     Indication: PRODUCT USED FOR UNKNOWN INDICATION
     Dosage: 30 MILLIGRAM
     Dates: start: 20180919
  24. TAMSULOSIN [Concomitant]
     Active Substance: TAMSULOSIN
     Indication: PRODUCT USED FOR UNKNOWN INDICATION
     Dosage: 0.2 MILLIGRAM
     Dates: start: 20180919
  25. AFLIBERCEPT [Concomitant]
     Active Substance: AFLIBERCEPT
     Dosage: 261 MILLIGRAM
     Dates: start: 20181016
  26. ATROPINE. [Concomitant]
     Active Substance: ATROPINE
     Dosage: 0.5 MILLIGRAM
     Dates: start: 20181026, end: 20181026
  27. DEXAMETHASONE. [Concomitant]
     Active Substance: DEXAMETHASONE
     Dosage: 12 MILLIGRAM
     Dates: start: 20181012, end: 20181012
  28. IRINOTECAN [Concomitant]
     Active Substance: IRINOTECAN
     Dosage: 126 MILLIGRAM
     Dates: start: 20181116
  29. MAGNESIUM OXIDE. [Concomitant]
     Active Substance: MAGNESIUM OXIDE
     Indication: PRODUCT USED FOR UNKNOWN INDICATION
     Dosage: 1000 MILLIGRAM
     Dates: start: 20180919
  30. ATROPINE. [Concomitant]
     Active Substance: ATROPINE
     Dosage: 0.5 MILLIGRAM
     Dates: start: 20181116, end: 20181116
  31. BENZYDAMINE [Concomitant]
     Active Substance: BENZYDAMINE
     Indication: PRODUCT USED FOR UNKNOWN INDICATION
     Dosage: 45 UNK
     Dates: start: 20180919
  32. FLUOROURACIL. [Concomitant]
     Active Substance: FLUOROURACIL
     Dosage: 1680 MILLIGRAM
     Dates: start: 20181116
  33. IRINOTECAN [Concomitant]
     Active Substance: IRINOTECAN
     Dosage: 144 MILLIGRAM
     Dates: start: 20181026
  34. PREGABALIN. [Concomitant]
     Active Substance: PREGABALIN
     Indication: PRODUCT USED FOR UNKNOWN INDICATION
     Dosage: 150 MILLIGRAM
     Dates: start: 20181005, end: 20181011
  35. APREPITANT. [Concomitant]
     Active Substance: APREPITANT
     Dosage: 150 MILLIGRAM
     Dates: start: 20181116, end: 20181116

REACTIONS (3)
  - Hypoaesthesia [Recovering/Resolving]
  - Neutropenia [Recovered/Resolved]
  - Decreased appetite [Recovered/Resolved]

NARRATIVE: CASE EVENT DATE: 20181005
